FAERS Safety Report 16276543 (Version 3)
Quarter: 2020Q3

REPORT INFORMATION
  Report Type: Report from Study
  Country: CO (occurrence: CO)
  Receive Date: 20190506
  Receipt Date: 20200723
  Transmission Date: 20201102
  Serious: Yes (Hospitalization, Other)
  Sender: FDA-Public Use
  Company Number: CO-ASTELLAS-2019US019483

PATIENT
  Age: 69 Year
  Sex: Male
  Weight: 62 kg

DRUGS (6)
  1. TACROLIMUS. [Suspect]
     Active Substance: TACROLIMUS
     Indication: RENAL TRANSPLANT
     Dosage: 6 MG (1 CAPSULE OF 1 MG AND 1 CAPSULE OF 5 MG), ONCE DAILY
     Route: 048
     Dates: start: 20181211, end: 20190418
  2. TACROLIMUS. [Suspect]
     Active Substance: TACROLIMUS
     Route: 048
  3. MYCOPHENOLATE [Concomitant]
     Active Substance: MYCOPHENOLIC ACID
     Indication: RENAL TRANSPLANT
     Dosage: 2 IN THE MORNING AND 1 IN NIGHT
     Route: 048
     Dates: start: 20181211
  4. PREDNISOLONE. [Concomitant]
     Active Substance: PREDNISOLONE
     Indication: RENAL TRANSPLANT
     Route: 048
     Dates: start: 20181211
  5. TRIMETHOPRIM. [Concomitant]
     Active Substance: TRIMETHOPRIM
     Indication: RENAL TRANSPLANT
     Dosage: UNK UNK (MONDAY,WEDNESDAYAND FRIDAY), UNKNOWN FREQ.
     Route: 048
     Dates: start: 20181211
  6. TACROLIMUS. [Suspect]
     Active Substance: TACROLIMUS
     Dosage: 3 MG (1 CAPSULE OF 3 MG), ONCE DAILY
     Route: 048

REACTIONS (7)
  - Seizure [Recovered/Resolved]
  - Cytomegalovirus infection [Recovered/Resolved]
  - Immunosuppressant drug level increased [Unknown]
  - Immunosuppressant drug level increased [Recovered/Resolved]
  - Diarrhoea [Recovered/Resolved]
  - Hemiparesis [Recovered/Resolved]
  - Venous thrombosis [Recovered/Resolved]

NARRATIVE: CASE EVENT DATE: 201902
